FAERS Safety Report 6078323-2 (Version None)
Quarter: 2009Q1

REPORT INFORMATION
  Report Type: 
  Country: None (occurrence: None)
  Receive Date: 20090213
  Receipt Date: 20090206
  Transmission Date: 20090719
  Serious: Yes (Hospitalization)
  Sender: FDA-Public Use
  Company Number: US-GENENTECH-259713

PATIENT
  Sex: Male
  Weight: 39.3 kg

DRUGS (15)
  1. BLINDED DORNASE ALFA [Suspect]
     Indication: SINUSITIS
     Dosage: 2.5 MG, QD
     Route: 045
     Dates: start: 20070213, end: 20070411
  2. BLINDED PLACEBO [Suspect]
     Indication: SINUSITIS
     Dosage: 2.5 MG, QD
     Route: 045
     Dates: start: 20070213, end: 20070411
  3. BLINDED DORNASE ALFA [Suspect]
     Indication: CYSTIC FIBROSIS
  4. BLINDED PLACEBO [Suspect]
     Indication: CYSTIC FIBROSIS
  5. ALBUTEROL [Concomitant]
     Indication: ASTHMA
     Dosage: 2 PUFF, TID
  6. ERGOCALCIFEROL [Concomitant]
     Indication: DRUG USE FOR UNKNOWN INDICATION
     Dosage: 50 KIU, 3/WEEK
     Route: 048
  7. PANCREASE MT20 [Concomitant]
     Indication: PANCREATIC INSUFFICIENCY
     Route: 048
  8. FEXOFENADINE [Concomitant]
     Indication: DRUG USE FOR UNKNOWN INDICATION
     Dosage: 180 MG, QD
     Route: 048
  9. OMEPRAZOLE [Concomitant]
     Indication: GASTROOESOPHAGEAL REFLUX DISEASE
     Dosage: 20 MG, UNK
     Route: 048
  10. ADVAIR DISKUS 100/50 [Concomitant]
     Indication: ASTHMA
     Dosage: 1 PUFF, BID
  11. MULTIVITAMINS (ADEK) [Concomitant]
     Indication: PANCREATIC INSUFFICIENCY
     Dosage: 1 TABLET, BID
     Route: 048
  12. SODIUM CHLORIDE [Concomitant]
     Indication: SINUSITIS
     Dosage: UNK, BID
     Route: 061
  13. URSODIOL [Concomitant]
     Indication: LIVER DISORDER
     Dosage: 300 MG, BID
     Route: 048
  14. PANCRELIPASE [Concomitant]
     Indication: PANCREATIC INSUFFICIENCY
     Dosage: UNK, TID
     Route: 048
  15. ANTIBIOTICS (NOT SPECIFIED) [Concomitant]
     Indication: PRODUCTIVE COUGH

REACTIONS (1)
  - CYSTIC FIBROSIS LUNG [None]
